FAERS Safety Report 4731457-4 (Version None)
Quarter: 2005Q3

REPORT INFORMATION
  Report Type: 
  Country: None (occurrence: None)
  Receive Date: 20050719
  Receipt Date: 20040604
  Transmission Date: 20060218
  Serious: Yes (Hospitalization)
  Sender: FDA-Public Use
  Company Number: 199258

PATIENT
  Age: 55 Year
  Sex: Female

DRUGS (8)
  1. AVONEX [Suspect]
     Indication: MULTIPLE SCLEROSIS
     Dosage: 30 UG;QW;IM
     Route: 030
     Dates: start: 19990101, end: 20040101
  2. AVONEX [Suspect]
     Indication: MULTIPLE SCLEROSIS
     Dosage: 30 UG;QW;IM
     Route: 030
     Dates: start: 20040101
  3. TEGRETOL [Concomitant]
  4. KLONOPIN [Concomitant]
  5. SOLU-MEDROL [Concomitant]
  6. ATIVAN [Concomitant]
  7. CYTOXAN [Concomitant]
  8. IMIPRAMINE [Concomitant]

REACTIONS (4)
  - BACK PAIN [None]
  - CONTUSION [None]
  - FALL [None]
  - MULTIPLE SCLEROSIS [None]
